FAERS Safety Report 24813001 (Version 5)
Quarter: 2025Q3

REPORT INFORMATION
  Report Type: Report from Study
  Country: US (occurrence: US)
  Receive Date: 20250107
  Receipt Date: 20250926
  Transmission Date: 20251020
  Serious: Yes (Hospitalization)
  Sender: SUNOVION
  Company Number: US-SUMITOMO PHARMA SWITZERLAND GMBH-2024SPA006788

PATIENT
  Age: 84 Year
  Sex: Male

DRUGS (18)
  1. ORGOVYX [Suspect]
     Active Substance: RELUGOLIX
     Indication: Prostate cancer
     Dosage: 360 MG, SINGLE
     Route: 048
     Dates: start: 202412, end: 202412
  2. ORGOVYX [Suspect]
     Active Substance: RELUGOLIX
     Dosage: 120 MG, QD
     Route: 048
     Dates: start: 202412, end: 20250918
  3. ABIRATERONE ACETATE [Concomitant]
     Active Substance: ABIRATERONE ACETATE
     Indication: Prostate cancer
     Dosage: 250 MG, QD
  4. ALLOPURINOL [Concomitant]
     Active Substance: ALLOPURINOL
  5. CALCIUM CITRATE\CHOLECALCIFEROL [Concomitant]
     Active Substance: CALCIUM CITRATE\CHOLECALCIFEROL
  6. METOPROLOL SUCCINATE [Concomitant]
     Active Substance: METOPROLOL SUCCINATE
  7. Potassium Sodium Chloride [Concomitant]
  8. PREDNISONE [Concomitant]
     Active Substance: PREDNISONE
  9. Urea powder [Concomitant]
  10. ACETAMINOPHEN [Concomitant]
     Active Substance: ACETAMINOPHEN
  11. Acidophilus Lactobacillus [Concomitant]
  12. ELIQUIS [Concomitant]
     Active Substance: APIXABAN
  13. JARDIANCE [Concomitant]
     Active Substance: EMPAGLIFLOZIN
  14. NUBEQA [Concomitant]
     Active Substance: DAROLUTAMIDE
  15. SPIRONOLACTONE [Concomitant]
     Active Substance: SPIRONOLACTONE
  16. TAMSULOSIN HYDROCHLORIDE [Concomitant]
     Active Substance: TAMSULOSIN HYDROCHLORIDE
  17. TORSEMIDE [Concomitant]
     Active Substance: TORSEMIDE
  18. Ure na [Concomitant]

REACTIONS (14)
  - Pollakiuria [Recovering/Resolving]
  - Rash erythematous [Recovering/Resolving]
  - Restlessness [Unknown]
  - Thirst [Unknown]
  - Peripheral swelling [Unknown]
  - Diarrhoea [Unknown]
  - Depressed mood [Unknown]
  - Weight increased [Unknown]
  - Fatigue [Unknown]
  - Asthenia [Unknown]
  - Constipation [Unknown]
  - Product distribution issue [Recovered/Resolved]
  - Incorrect dose administered [Recovered/Resolved]
  - Product dose omission issue [Recovered/Resolved]

NARRATIVE: CASE EVENT DATE: 20241229
